FAERS Safety Report 9691168 (Version 2)
Quarter: 2013Q4

REPORT INFORMATION
  Report Type: Report from Study
  Country: AU (occurrence: AU)
  Receive Date: 20131115
  Receipt Date: 20131127
  Transmission Date: 20140711
  Serious: Yes (Hospitalization)
  Sender: FDA-Public Use
  Company Number: AU-ABBVIE-13P-008-1167079-00

PATIENT
  Age: 26 Year
  Sex: Female

DRUGS (4)
  1. HUMIRA [Suspect]
     Indication: HIDRADENITIS
     Route: 058
     Dates: start: 20130418
  2. PARACETAMOL [Concomitant]
     Indication: HIDRADENITIS
     Route: 048
     Dates: start: 20121121
  3. IBUPROFEN [Concomitant]
     Indication: HIDRADENITIS
     Dosage: 200-400MG
     Route: 048
     Dates: start: 20121123
  4. CHLORHEXIDINE GLUCONATE 2% W/W [Concomitant]
     Indication: HIDRADENITIS
     Route: 061
     Dates: start: 20130418

REACTIONS (1)
  - Suicidal ideation [Unknown]
